FAERS Safety Report 6380709-3 (Version None)
Quarter: 2009Q3

REPORT INFORMATION
  Report Type: 
  Country: None (occurrence: None)
  Receive Date: 20090929
  Receipt Date: 20090923
  Transmission Date: 20100115
  Serious: Yes (Death, Other)
  Sender: FDA-Public Use
  Company Number: DE-ROCHE-648070

PATIENT
  Sex: Female
  Weight: 63 kg

DRUGS (4)
  1. XELODA [Suspect]
     Route: 048
     Dates: start: 20090227, end: 20090501
  2. XELODA [Suspect]
     Route: 048
  3. AVASTIN [Suspect]
     Dosage: FREQUENCY: Q 21,
     Route: 042
     Dates: start: 20090305, end: 20090625
  4. BONDRONAT [Concomitant]
     Dosage: FREQUENCY: Q 21
     Route: 042
     Dates: start: 20090423, end: 20090625

REACTIONS (6)
  - FATIGUE [None]
  - GENERAL PHYSICAL HEALTH DETERIORATION [None]
  - INTESTINAL PERFORATION [None]
  - MALIGNANT NEOPLASM PROGRESSION [None]
  - THROMBOCYTOPENIA [None]
  - WEIGHT DECREASED [None]
